FAERS Safety Report 8443686-7 (Version None)
Quarter: 2012Q2

REPORT INFORMATION
  Report Type: 
  Country: None (occurrence: None)
  Receive Date: 20120618
  Receipt Date: 20120611
  Transmission Date: 20120825
  Serious: Yes (Life-Threatening, Other)
  Sender: FDA-Public Use
  Company Number: US-JNJFOC-20120312630

PATIENT
  Sex: Male
  Weight: 140 kg

DRUGS (40)
  1. SINGULAIR [Concomitant]
     Indication: MULTIPLE ALLERGIES
     Route: 048
     Dates: start: 20060401
  2. TORSEMIDE [Concomitant]
     Indication: HYPERTENSION
     Route: 048
     Dates: start: 20000901, end: 20100128
  3. TORSEMIDE [Concomitant]
     Route: 048
     Dates: start: 20100128, end: 20100305
  4. CALTRATE +D [Concomitant]
     Indication: MEDICAL DIET
     Route: 048
     Dates: start: 20120312, end: 20120518
  5. CALTRATE +D [Concomitant]
     Route: 048
     Dates: start: 20100128, end: 20111202
  6. LASIX [Concomitant]
     Indication: OEDEMA PERIPHERAL
     Route: 048
     Dates: start: 20110501, end: 20111202
  7. TRAMADOL HCL [Concomitant]
     Indication: CANCER PAIN
     Route: 048
     Dates: start: 20111121, end: 20111230
  8. LANTUS [Concomitant]
     Indication: DIABETES MELLITUS
     Route: 058
     Dates: start: 20070801
  9. NOVOLOG [Concomitant]
     Dosage: EVERY EVENING
     Route: 058
     Dates: start: 20070801
  10. TETRACYCLINE [Concomitant]
     Indication: ROSACEA
     Route: 048
     Dates: start: 19970131
  11. ALBUTEROL [Concomitant]
     Indication: BRONCHITIS
     Route: 045
     Dates: start: 20120412
  12. PREDNISONE [Suspect]
     Route: 048
     Dates: start: 20090716
  13. NOVOLOG [Concomitant]
     Indication: DIABETES MELLITUS
     Dosage: EVERY MORNING
     Route: 058
     Dates: start: 20070801
  14. PLAVIX [Concomitant]
     Indication: ARTERIOSCLEROSIS
     Route: 048
     Dates: start: 20000901, end: 20120508
  15. EPLERENONE [Concomitant]
     Indication: OEDEMA
     Route: 048
     Dates: start: 20111119
  16. ALLOPURINOL [Concomitant]
     Indication: PROPHYLAXIS
     Route: 065
     Dates: start: 20120412, end: 20120518
  17. ABIRATERONE ACETATE [Suspect]
     Indication: PROSTATE CANCER METASTATIC
     Route: 048
     Dates: start: 20090716, end: 20120419
  18. CARTIA XT [Concomitant]
     Indication: HYPERTENSION
     Route: 048
     Dates: start: 20010701
  19. VANTAS [Concomitant]
     Indication: CANCER HORMONAL THERAPY
     Route: 065
     Dates: start: 20061001
  20. ALLOPURINOL [Concomitant]
     Indication: HYPERURICAEMIA
     Route: 065
     Dates: start: 20120412, end: 20120518
  21. CALTRATE +D [Concomitant]
     Route: 048
     Dates: start: 20120312, end: 20120518
  22. ABIRATERONE ACETATE [Suspect]
     Route: 048
  23. SIMCOR [Concomitant]
     Indication: HYPERLIPIDAEMIA
     Route: 048
     Dates: start: 20080801
  24. PREDNISONE [Suspect]
     Indication: PROSTATE CANCER METASTATIC
     Route: 048
     Dates: start: 20120423
  25. VANTAS [Concomitant]
     Route: 065
     Dates: start: 20090716
  26. TORSEMIDE [Concomitant]
     Route: 048
     Dates: start: 20101230, end: 20110811
  27. TORSEMIDE [Concomitant]
     Route: 048
     Dates: start: 20110811
  28. CALTRATE +D [Concomitant]
     Route: 048
     Dates: start: 20100128, end: 20111202
  29. ALLOPURINOL [Concomitant]
     Route: 065
     Dates: start: 20120324, end: 20120412
  30. AVAPRO [Concomitant]
     Route: 065
     Dates: start: 20020101, end: 20111230
  31. IBUPROFEN (ADVIL) [Concomitant]
     Indication: BACK PAIN
     Route: 048
     Dates: start: 20110901, end: 20111202
  32. ALBUTEROL [Concomitant]
     Indication: CHRONIC OBSTRUCTIVE PULMONARY DISEASE
     Route: 045
     Dates: start: 20120412
  33. PROAIR HFA [Concomitant]
     Indication: CHRONIC OBSTRUCTIVE PULMONARY DISEASE
     Dosage: 2 PUFFS EVERY 4-6 HOURS
     Route: 045
     Dates: start: 20120412
  34. COREG [Concomitant]
     Indication: CORONARY ARTERY DISEASE
     Route: 048
     Dates: start: 20050901
  35. ASPIRIN [Concomitant]
     Indication: CARDIOVASCULAR EVENT PROPHYLAXIS
     Route: 048
     Dates: start: 20000101
  36. CLARINEX [Concomitant]
     Indication: MULTIPLE ALLERGIES
     Route: 048
     Dates: start: 20060401
  37. TORSEMIDE [Concomitant]
     Route: 048
     Dates: start: 20100305, end: 20101230
  38. ALLOPURINOL [Concomitant]
     Route: 065
     Dates: start: 20120324, end: 20120412
  39. AVAPRO [Concomitant]
     Indication: HYPERTENSION
     Route: 065
     Dates: start: 20020101, end: 20111006
  40. IBUPROFEN (ADVIL) [Concomitant]
     Indication: MUSCULOSKELETAL PAIN
     Route: 048
     Dates: start: 20110901, end: 20111202

REACTIONS (2)
  - BLOOD URIC ACID INCREASED [None]
  - HYPERURICAEMIA [None]
